FAERS Safety Report 21096821 (Version 3)
Quarter: 2023Q1

REPORT INFORMATION
  Report Type: Spontaneous
  Country: JP (occurrence: JP)
  Receive Date: 20220718
  Receipt Date: 20230323
  Transmission Date: 20230418
  Serious: Yes (Other)
  Sender: FDA-Public Use
  Company Number: JP-BRISTOL-MYERS SQUIBB COMPANY-2022-074200

PATIENT
  Age: 69 Year
  Sex: Male

DRUGS (3)
  1. YERVOY [Suspect]
     Active Substance: IPILIMUMAB
     Indication: Malignant melanoma
  2. OPDIVO [Suspect]
     Active Substance: NIVOLUMAB
     Indication: Malignant melanoma
  3. OPDIVO [Suspect]
     Active Substance: NIVOLUMAB

REACTIONS (3)
  - Diarrhoea [Unknown]
  - Malignant neoplasm progression [Unknown]
  - Pemphigoid [Unknown]
